FAERS Safety Report 8598699-1 (Version None)
Quarter: 2012Q3

REPORT INFORMATION
  Report Type: 
  Country: None (occurrence: None)
  Receive Date: 20120816
  Receipt Date: 19960417
  Transmission Date: 20120928
  Serious: Yes (Death)
  Sender: FDA-Public Use
  Company Number: US-ROCHE-1100708

PATIENT
  Sex: Male

DRUGS (5)
  1. LIDOCAINE [Concomitant]
     Route: 040
  2. DOPAMINE HCL [Concomitant]
  3. ACTIVASE [Suspect]
     Indication: CARDIAC ARREST
     Dates: start: 19960325
  4. EPINEPHRINE [Concomitant]
  5. ATROPINE [Concomitant]

REACTIONS (1)
  - DEATH [None]
